FAERS Safety Report 8880475 (Version 2)
Quarter: 2012Q4

REPORT INFORMATION
  Report Type: 
  Country: JP (occurrence: JP)
  Receive Date: 20121031
  Receipt Date: 20121129
  Transmission Date: 20130627
  Serious: No
  Sender: FDA-Public Use
  Company Number: JP-ROCHE-1150625

PATIENT
  Age: 67 Year
  Sex: Female

DRUGS (2)
  1. AVASTIN [Suspect]
     Indication: LUNG ADENOCARCINOMA
     Route: 041
     Dates: start: 20121022
  2. RABEPRAZOLE SODIUM [Concomitant]
     Dosage: Dosage is uncertain.
     Route: 048

REACTIONS (1)
  - Faeces discoloured [Recovered/Resolved]
